FAERS Safety Report 23444233 (Version 2)
Quarter: 2024Q1

REPORT INFORMATION
  Report Type: Spontaneous
  Country: US (occurrence: US)
  Receive Date: 20240125
  Receipt Date: 20240131
  Transmission Date: 20240410
  Serious: Yes (Other)
  Sender: FDA-Public Use
  Company Number: US-PFIZER INC-PV202400010304

PATIENT
  Age: 67 Year
  Sex: Female
  Weight: 76.644 kg

DRUGS (2)
  1. TIKOSYN [Suspect]
     Active Substance: DOFETILIDE
     Indication: Atrial fibrillation
     Dosage: TAKE 1 CAPSULE BY MOUTH EVERY 12 HOURS
     Route: 048
  2. XARELTO [Concomitant]
     Active Substance: RIVAROXABAN
     Indication: Haemorrhage
     Dosage: UNK

REACTIONS (4)
  - Colon cancer [Unknown]
  - Off label use [Unknown]
  - Fatigue [Unknown]
  - Microcytic anaemia [Unknown]
